FAERS Safety Report 9742656 (Version 3)
Quarter: 2015Q3

REPORT INFORMATION
  Report Type: Spontaneous
  Country: US (occurrence: US)
  Receive Date: 20131210
  Receipt Date: 20150804
  Transmission Date: 20151125
  Serious: No
  Sender: FDA-Public Use
  Company Number: US-GILEAD-2009-0024276

PATIENT
  Age: 88 Year
  Sex: Female
  Weight: 48.99 kg

DRUGS (11)
  1. TRICOR [Concomitant]
     Active Substance: FENOFIBRATE
  2. FLOMAX [Concomitant]
     Active Substance: TAMSULOSIN HYDROCHLORIDE
  3. MULTIVITAMIN [Concomitant]
     Active Substance: VITAMINS
  4. ALBUTEROL INHALER [Concomitant]
     Active Substance: ALBUTEROL
  5. EXELON [Concomitant]
     Active Substance: RIVASTIGMINE TARTRATE
  6. PROCRIT [Concomitant]
     Active Substance: ERYTHROPOIETIN
  7. LASIX [Concomitant]
     Active Substance: FUROSEMIDE
  8. NAMENDA [Concomitant]
     Active Substance: MEMANTINE HYDROCHLORIDE
  9. LETAIRIS [Suspect]
     Active Substance: AMBRISENTAN
     Indication: PULMONARY ARTERIAL HYPERTENSION
     Route: 048
     Dates: start: 20090604
  10. SPIRIVA [Concomitant]
     Active Substance: TIOTROPIUM BROMIDE MONOHYDRATE
  11. ASPIRIN. [Concomitant]
     Active Substance: ASPIRIN

REACTIONS (2)
  - Hearing impaired [Unknown]
  - Diplacusis [Unknown]
